FAERS Safety Report 5338252-6 (Version None)
Quarter: 2007Q2

REPORT INFORMATION
  Report Type: 
  Country: None (occurrence: None)
  Receive Date: 20070329
  Receipt Date: 20061207
  Transmission Date: 20071010
  Serious: Yes (Other)
  Sender: FDA-Public Use
  Company Number: 2006152293

PATIENT
  Age: 55 Year
  Sex: Male
  Weight: 78.5 kg

DRUGS (15)
  1. SILDENAFIL CITRATE [Suspect]
     Indication: PULMONARY HYPERTENSION
     Dosage: (3 IN 1 D)
     Dates: start: 20061101
  2. OMEPRAZOLE [Concomitant]
  3. CLONIDINE [Concomitant]
  4. LEVOSALBUTAMOL (LEVOSALBUTAMOL) [Concomitant]
  5. POTASSIUM CHLORIDE [Concomitant]
  6. METHOCARBAMOL [Concomitant]
  7. METFORMIN HCL [Concomitant]
  8. LORATADINE [Concomitant]
  9. LISINOPRIL [Concomitant]
  10. IBUPROFEN [Concomitant]
  11. GLYBURIDE [Concomitant]
  12. ATENOLOL [Concomitant]
  13. TEMAZEPAM [Concomitant]
  14. FLOLAN [Concomitant]
  15. VICODIN [Concomitant]

REACTIONS (2)
  - CHROMATOPSIA [None]
  - HEADACHE [None]
